FAERS Safety Report 8438584-9 (Version None)
Quarter: 2012Q2

REPORT INFORMATION
  Report Type: 
  Country: None (occurrence: None)
  Receive Date: 20120615
  Receipt Date: 20120611
  Transmission Date: 20120825
  Serious: No
  Sender: FDA-Public Use
  Company Number: US-PFIZER INC-2012142508

PATIENT
  Sex: Female
  Weight: 91 kg

DRUGS (2)
  1. LYRICA [Suspect]
     Indication: NERVE INJURY
     Dosage: 100 MG, 2X/DAY
     Route: 048
     Dates: start: 20090101
  2. LYRICA [Suspect]
     Dosage: 100 MG, 1X/DAY
     Route: 048

REACTIONS (1)
  - PAIN [None]
